FAERS Safety Report 6160238-2 (Version None)
Quarter: 2009Q2

REPORT INFORMATION
  Report Type: 
  Country: None (occurrence: None)
  Receive Date: 20090420
  Receipt Date: 20090410
  Transmission Date: 20091009
  Serious: Yes (Hospitalization)
  Sender: FDA-Public Use
  Company Number: B0569473A

PATIENT
  Sex: Male

DRUGS (5)
  1. AUGMENTIN '125' [Suspect]
     Indication: CHRONIC OBSTRUCTIVE PULMONARY DISEASE
     Dosage: 1G THREE TIMES PER DAY
     Route: 048
  2. KARDEGIC [Suspect]
     Indication: CEREBROVASCULAR ACCIDENT
     Dosage: 75MG PER DAY
     Route: 048
  3. ZOXAN [Concomitant]
     Dosage: 1UNIT PER DAY
     Route: 048
  4. CARBOCYSTEINE [Concomitant]
     Indication: CHRONIC OBSTRUCTIVE PULMONARY DISEASE
     Route: 048
  5. CETORNAN [Concomitant]
     Dosage: 10G PER DAY
     Route: 048

REACTIONS (4)
  - ANAEMIA [None]
  - GASTRITIS [None]
  - MELAENA [None]
  - OESOPHAGITIS [None]
